FAERS Safety Report 7968615-1 (Version None)
Quarter: 2011Q4

REPORT INFORMATION
  Report Type: 
  Country: None (occurrence: None)
  Receive Date: 20111209
  Receipt Date: 20111130
  Transmission Date: 20120403
  Serious: Yes (Other)
  Sender: FDA-Public Use
  Company Number: FR-JNJFOC-20111111375

PATIENT
  Age: 46 Year
  Sex: Male
  Weight: 80 kg

DRUGS (2)
  1. REMICADE [Suspect]
     Indication: PSORIASIS
     Dosage: SECOND INFUSION
     Route: 042
     Dates: start: 20111005, end: 20111005
  2. REMICADE [Suspect]
     Route: 042
     Dates: start: 20110921

REACTIONS (6)
  - INFUSION RELATED REACTION [None]
  - ASTHENIA [None]
  - HYPOTENSION [None]
  - MALAISE [None]
  - TACHYCARDIA [None]
  - BRADYCARDIA [None]
